FAERS Safety Report 4604585-1 (Version None)
Quarter: 2005Q2

REPORT INFORMATION
  Report Type: 
  Country: None (occurrence: None)
  Receive Date: 20050217
  Receipt Date: 20050103
  Transmission Date: 20051028
  Serious: No
  Sender: FDA-Public Use
  Company Number: S05-USA-00003-01

PATIENT
  Age: 76 Year
  Sex: Male

DRUGS (6)
  1. NAMENDA [Suspect]
     Indication: DEMENTIA
     Dosage: 10 MG BID PO
     Route: 048
     Dates: start: 20041228
  2. NAMENDA [Suspect]
     Indication: DEMENTIA
     Dosage: 5 MG QD PO
     Route: 048
     Dates: start: 20041207, end: 20041213
  3. NAMENDA [Suspect]
     Indication: DEMENTIA
     Dosage: 5 MG BID PO
     Route: 048
     Dates: start: 20041214, end: 20041220
  4. NAMENDA [Suspect]
     Indication: DEMENTIA
     Dosage: 15 MG QD PO
     Route: 048
     Dates: start: 20041221, end: 20041227
  5. PARKINSON'S MEDICATION [Concomitant]
  6. UNKNOWN MEDICATIONS [Concomitant]

REACTIONS (5)
  - CONSTIPATION [None]
  - DISORIENTATION [None]
  - FLAT AFFECT [None]
  - JOINT SWELLING [None]
  - URINE OUTPUT DECREASED [None]
